FAERS Safety Report 7872925-6 (Version None)
Quarter: 2011Q4

REPORT INFORMATION
  Report Type: 
  Country: None (occurrence: None)
  Receive Date: 20111030
  Receipt Date: 20110427
  Transmission Date: 20120403
  Serious: No
  Sender: FDA-Public Use
  Company Number: US-AMGEN-USASP2011021990

PATIENT
  Age: 49 Year
  Sex: Female

DRUGS (2)
  1. PREDNISONE [Concomitant]
  2. ENBREL [Suspect]
     Indication: RHEUMATOID ARTHRITIS
     Dates: start: 20030201

REACTIONS (3)
  - COUGH [None]
  - RHEUMATOID ARTHRITIS [None]
  - SINUSITIS [None]
